FAERS Safety Report 9697999 (Version 1)
Quarter: 2013Q4

REPORT INFORMATION
  Report Type: Spontaneous
  Country: CH (occurrence: None)
  Receive Date: 20131118
  Receipt Date: 20131118
  Transmission Date: 20140711
  Serious: Yes (Death)
  Sender: FDA-Public Use
  Company Number: 20130648

PATIENT
  Sex: 0

DRUGS (3)
  1. FERINJECT [Suspect]
  2. TRAVEGIL (CLEMASTINE) [Concomitant]
  3. PREDNISONE [Concomitant]

REACTIONS (2)
  - C-reactive protein increased [None]
  - Pyrexia [None]
